FAERS Safety Report 18392166 (Version 1)
Quarter: 2020Q4

REPORT INFORMATION
  Report Type: Spontaneous
  Country: FR (occurrence: FR)
  Receive Date: 20201016
  Receipt Date: 20201016
  Transmission Date: 20210114
  Serious: Yes (Other)
  Sender: FDA-Public Use
  Company Number: FR-TEVA-2020-FR-1838740

PATIENT
  Age: 22 Year
  Sex: Male

DRUGS (1)
  1. ISOTRETINOINE [Suspect]
     Active Substance: ISOTRETINOIN
     Indication: ACNE
     Dosage: 1 DOSAGE FORMS
     Route: 048
     Dates: start: 2020, end: 2020

REACTIONS (1)
  - Pericarditis [Unknown]

NARRATIVE: CASE EVENT DATE: 2020
